FAERS Safety Report 8116308-2 (Version None)
Quarter: 2012Q1

REPORT INFORMATION
  Report Type: 
  Country: None (occurrence: None)
  Receive Date: 20120206
  Receipt Date: 20100901
  Transmission Date: 20120608
  Serious: Yes (Hospitalization)
  Sender: FDA-Public Use
  Company Number: US-GLAXOSMITHKLINE-A0879890A

PATIENT
  Age: 70 Year
  Sex: Female
  Weight: 62.7 kg

DRUGS (11)
  1. METOPROLOL [Concomitant]
     Indication: HYPERTENSION
     Dosage: 25MG TWICE PER DAY
     Route: 048
     Dates: start: 20070101
  2. HYDROCHLOROTHIAZIDE [Concomitant]
     Indication: HYPERTENSION
     Dosage: 25MG PER DAY
     Route: 048
     Dates: start: 20080101
  3. COUMADIN [Concomitant]
  4. TARCEVA [Suspect]
     Indication: NON-SMALL CELL LUNG CANCER
     Dosage: 150MG PER DAY
     Route: 048
     Dates: start: 20100813, end: 20100827
  5. CLONIDINE [Concomitant]
     Indication: HYPERTENSION
     Dosage: .1MG TWICE PER DAY
     Route: 048
     Dates: start: 20080101
  6. RAMIPRIL [Concomitant]
     Indication: HYPERTENSION
     Dosage: 10MG TWICE PER DAY
     Route: 048
     Dates: start: 20070101
  7. VOTRIENT [Suspect]
     Indication: NON-SMALL CELL LUNG CANCER
     Dosage: 600MG PER DAY
     Route: 048
     Dates: start: 20100813, end: 20100827
  8. AMLODIPINE [Concomitant]
     Indication: HYPERTENSION
     Dosage: 10MG PER DAY
     Route: 048
     Dates: start: 20090201
  9. FOLIC ACID [Concomitant]
     Dosage: 80MCG TWICE PER DAY
     Route: 048
     Dates: start: 20090801
  10. IMODIUM A-D [Concomitant]
     Route: 048
     Dates: start: 20100820
  11. COUMADIN [Concomitant]
     Indication: CORONARY ARTERY DISEASE
     Route: 048
     Dates: start: 20070101, end: 20100824

REACTIONS (9)
  - DIARRHOEA [None]
  - FATIGUE [None]
  - MALAISE [None]
  - DEHYDRATION [None]
  - PULMONARY EMBOLISM [None]
  - HYPOXIA [None]
  - PNEUMONIA [None]
  - PNEUMONITIS [None]
  - NAUSEA [None]
